FAERS Safety Report 12756382 (Version 2)
Quarter: 2016Q4

REPORT INFORMATION
  Report Type: Spontaneous
  Country: GB (occurrence: GB)
  Receive Date: 20160916
  Receipt Date: 20161007
  Transmission Date: 20170207
  Serious: Yes (Life-Threatening, Hospitalization, Other)
  Sender: FDA-Public Use
  Company Number: GB-009507513-1609GBR004817

PATIENT
  Age: 22 Year
  Sex: Female
  Weight: 95 kg

DRUGS (1)
  1. NEXPLANON [Suspect]
     Active Substance: ETONOGESTREL
     Indication: CONTRACEPTION
     Dosage: UNK, EVERY 3 YEARS
     Route: 058
     Dates: start: 20140131, end: 20160907

REACTIONS (4)
  - Ruptured ectopic pregnancy [Unknown]
  - Ectopic pregnancy with contraceptive device [Recovered/Resolved]
  - Menstruation normal [Recovered/Resolved]
  - Unintended pregnancy [Recovered/Resolved]

NARRATIVE: CASE EVENT DATE: 20140131
